FAERS Safety Report 12215128 (Version 1)
Quarter: 2016Q1

REPORT INFORMATION
  Report Type: Spontaneous
  Country: AT (occurrence: AT)
  Receive Date: 20160328
  Receipt Date: 20160328
  Transmission Date: 20160526
  Serious: Yes (Hospitalization)
  Sender: FDA-Public Use
  Company Number: AT-JNJFOC-20160322083

PATIENT
  Sex: Female
  Weight: 78.7 kg

DRUGS (7)
  1. PAROXAT [Concomitant]
     Active Substance: PAROXETINE HYDROCHLORIDE
     Route: 065
     Dates: start: 2002
  2. XARELTO [Suspect]
     Active Substance: RIVAROXABAN
     Indication: PULMONARY EMBOLISM
     Route: 048
     Dates: start: 201409
  3. ATORVASTATIN [Concomitant]
     Active Substance: ATORVASTATIN
     Route: 065
     Dates: start: 2014
  4. NEURONTIN [Concomitant]
     Active Substance: GABAPENTIN
     Route: 065
     Dates: start: 201409
  5. XANOR [Concomitant]
     Active Substance: ALPRAZOLAM
     Route: 065
     Dates: start: 2002
  6. XARELTO [Suspect]
     Active Substance: RIVAROXABAN
     Indication: CEREBROVASCULAR ACCIDENT
     Route: 048
     Dates: start: 201409
  7. PANTOPRAZOLE [Concomitant]
     Active Substance: PANTOPRAZOLE SODIUM
     Route: 065
     Dates: start: 2010

REACTIONS (10)
  - Abdominal pain upper [Recovering/Resolving]
  - Cholelithiasis [Recovering/Resolving]
  - Liver function test abnormal [Recovering/Resolving]
  - General physical health deterioration [Recovering/Resolving]
  - Fatigue [Recovering/Resolving]
  - Liver disorder [Not Recovered/Not Resolved]
  - Pleural effusion [Recovering/Resolving]
  - Body temperature increased [Recovering/Resolving]
  - Hepatic cirrhosis [Not Recovered/Not Resolved]
  - Ascites [Recovering/Resolving]
